FAERS Safety Report 22331956 (Version 1)
Quarter: 2023Q2

REPORT INFORMATION
  Report Type: Spontaneous
  Country: US (occurrence: US)
  Receive Date: 20230517
  Receipt Date: 20230517
  Transmission Date: 20230721
  Serious: Yes (Hospitalization)
  Sender: FDA-Public Use
  Company Number: US-SA-SAC20230515000130

PATIENT
  Age: 58 Year
  Sex: Female

DRUGS (1)
  1. NEXVIAZYME [Suspect]
     Active Substance: AVALGLUCOSIDASE ALFA-NGPT
     Dosage: 20 MG/KG, QOW
     Route: 065
     Dates: start: 20230122

REACTIONS (7)
  - Lung infiltration [Unknown]
  - Respiratory disorder [Unknown]
  - Oxygen saturation decreased [Unknown]
  - Myalgia [Unknown]
  - Vitamin D decreased [Unknown]
  - Blood creatinine decreased [Unknown]
  - Urinary tract infection [Unknown]
